FAERS Safety Report 8388187-X (Version None)
Quarter: 2012Q2

REPORT INFORMATION
  Report Type: 
  Country: None (occurrence: None)
  Receive Date: 20120525
  Receipt Date: 20120517
  Transmission Date: 20120825
  Serious: Yes (Hospitalization, Other)
  Sender: FDA-Public Use
  Company Number: US-UCBSA-040937

PATIENT
  Age: 26 Year
  Sex: Female
  Weight: 107.5 kg

DRUGS (7)
  1. ETODOLAC [Concomitant]
     Indication: ARTHRITIS
     Route: 048
     Dates: start: 20110101
  2. TYLENOL [Concomitant]
     Indication: ARTHRALGIA
     Route: 048
     Dates: start: 20110501
  3. CIMZIA [Suspect]
     Indication: RHEUMATOID ARTHRITIS
     Route: 058
     Dates: start: 20110712, end: 20110829
  4. SULFASALAZINE [Concomitant]
     Indication: ARTHRITIS
     Route: 048
     Dates: start: 20110222
  5. MULTI-VITAMINS [Concomitant]
  6. PERCOCET [Concomitant]
     Indication: PROCEDURAL PAIN
     Dosage: DOSE: 5/325 MG PRN
     Route: 048
     Dates: start: 20110810, end: 20110812
  7. VALTREX [Concomitant]
     Indication: HERPES SIMPLEX

REACTIONS (1)
  - PREGNANCY ON CONTRACEPTIVE [None]
